FAERS Safety Report 5419324-4 (Version None)
Quarter: 2007Q3

REPORT INFORMATION
  Report Type: 
  Country: None (occurrence: None)
  Receive Date: 20070820
  Receipt Date: 20070626
  Transmission Date: 20080115
  Serious: Yes (Other)
  Sender: FDA-Public Use
  Company Number: US-PURDUE-USA_2007_0028163

PATIENT
  Age: 25 Year
  Sex: Male
  Weight: 170 kg

DRUGS (2)
  1. OXYCONTIN [Suspect]
     Indication: PAIN
     Dosage: 20 MG, SEE TEXT
     Dates: start: 20001116, end: 20021227
  2. PERCOCET [Concomitant]
     Dosage: 7.5 MG, Q4H

REACTIONS (4)
  - CEREBROVASCULAR ACCIDENT [None]
  - DEMENTIA [None]
  - HEADACHE [None]
  - NAUSEA [None]
